FAERS Safety Report 7364450-6 (Version None)
Quarter: 2011Q1

REPORT INFORMATION
  Report Type: 
  Country: None (occurrence: None)
  Receive Date: 20110315
  Receipt Date: 20110315
  Transmission Date: 20110831
  Serious: No
  Sender: FDA-Public Use
  Company Number: None

PATIENT
  Age: 53 Year
  Sex: Female
  Weight: 72.1219 kg

DRUGS (1)
  1. EXFORGE [Suspect]
     Indication: HYPERTENSION
     Dosage: 1 DAILY PO
     Route: 048

REACTIONS (7)
  - DIZZINESS [None]
  - FLATULENCE [None]
  - HAEMORRHAGE [None]
  - ECZEMA [None]
  - ALOPECIA [None]
  - PRURITUS [None]
  - RASH [None]
